FAERS Safety Report 6660323-2 (Version None)
Quarter: 2010Q1

REPORT INFORMATION
  Report Type: 
  Country: None (occurrence: None)
  Receive Date: 20100331
  Receipt Date: 20100319
  Transmission Date: 20100710
  Serious: No
  Sender: FDA-Public Use
  Company Number: 2010BI005994

PATIENT
  Age: 35 Year
  Sex: Male

DRUGS (1)
  1. TYSABRI [Suspect]
     Indication: MULTIPLE SCLEROSIS
     Route: 042
     Dates: start: 20080811

REACTIONS (5)
  - DIZZINESS [None]
  - FEELING COLD [None]
  - INCOHERENT [None]
  - INCORRECT DRUG ADMINISTRATION RATE [None]
  - SEDATION [None]
